FAERS Safety Report 13447091 (Version 1)
Quarter: 2017Q2

REPORT INFORMATION
  Report Type: Spontaneous
  Country: US (occurrence: US)
  Receive Date: 20170414
  Receipt Date: 20170414
  Transmission Date: 20170830
  Serious: No
  Sender: FDA-Public Use
  Company Number: None

PATIENT
  Age: 37 Year
  Sex: Female

DRUGS (1)
  1. COSENTYX [Suspect]
     Active Substance: SECUKINUMAB
     Indication: PSORIASIS
     Dosage: 150MG WEEKLY WEEKS 0, 1, 2, 3, 4 SQ
     Route: 058
     Dates: start: 20170325

REACTIONS (4)
  - Anxiety [None]
  - Malaise [None]
  - Unevaluable event [None]
  - Agitation [None]

NARRATIVE: CASE EVENT DATE: 20170401
